FAERS Safety Report 25836365 (Version 3)
Quarter: 2025Q4

REPORT INFORMATION
  Report Type: Other
  Country: GB (occurrence: GB)
  Receive Date: 20250923
  Receipt Date: 20251209
  Transmission Date: 20260118
  Serious: Yes (Hospitalization, Other)
  Sender: STRIDES
  Company Number: GB-OPELLA-2025OHG026584

PATIENT
  Sex: Female

DRUGS (83)
  1. PREGABALIN [Suspect]
     Active Substance: PREGABALIN
     Indication: Hypermobility syndrome
     Dosage: UNK
     Route: 065
  2. PREGABALIN [Suspect]
     Active Substance: PREGABALIN
     Indication: Fibromyalgia
     Dosage: UNK
     Route: 065
  3. PREGABALIN [Suspect]
     Active Substance: PREGABALIN
     Indication: Intervertebral disc degeneration
  4. PREGABALIN [Suspect]
     Active Substance: PREGABALIN
     Indication: Neuropathy peripheral
  5. PREGABALIN [Suspect]
     Active Substance: PREGABALIN
     Indication: Hemiplegic migraine
  6. PREGABALIN [Suspect]
     Active Substance: PREGABALIN
     Indication: Endometriosis
  7. PREGABALIN [Suspect]
     Active Substance: PREGABALIN
     Indication: Arthralgia
  8. PREGABALIN [Suspect]
     Active Substance: PREGABALIN
     Indication: Spinal osteoarthritis
  9. PREGABALIN [Suspect]
     Active Substance: PREGABALIN
     Indication: Hyperparathyroidism
  10. PREGABALIN [Suspect]
     Active Substance: PREGABALIN
     Indication: Hernia
  11. PREGABALIN [Suspect]
     Active Substance: PREGABALIN
     Indication: Product used for unknown indication
  12. TRAMADOL [Suspect]
     Active Substance: TRAMADOL
     Indication: Hypermobility syndrome
     Dosage: UNK
     Route: 065
  13. TRAMADOL [Suspect]
     Active Substance: TRAMADOL
     Indication: Fibromyalgia
     Dosage: UNK
     Route: 065
  14. TRAMADOL [Suspect]
     Active Substance: TRAMADOL
     Indication: Intervertebral disc degeneration
  15. TRAMADOL [Suspect]
     Active Substance: TRAMADOL
     Indication: Neuropathy peripheral
  16. TRAMADOL [Suspect]
     Active Substance: TRAMADOL
     Indication: Hemiplegic migraine
  17. TRAMADOL [Suspect]
     Active Substance: TRAMADOL
     Indication: Endometriosis
  18. TRAMADOL [Suspect]
     Active Substance: TRAMADOL
     Indication: Arthralgia
  19. TRAMADOL [Suspect]
     Active Substance: TRAMADOL
     Indication: Spinal osteoarthritis
  20. TRAMADOL [Suspect]
     Active Substance: TRAMADOL
     Indication: Hyperparathyroidism
  21. TRAMADOL [Suspect]
     Active Substance: TRAMADOL
     Indication: Hernia
  22. TRAMADOL [Suspect]
     Active Substance: TRAMADOL
     Indication: Product used for unknown indication
  23. NAPROXEN [Suspect]
     Active Substance: NAPROXEN
     Indication: Hypermobility syndrome
     Dosage: UNK
     Route: 065
  24. NAPROXEN [Suspect]
     Active Substance: NAPROXEN
     Indication: Fibromyalgia
     Dosage: UNK
     Route: 065
  25. NAPROXEN [Suspect]
     Active Substance: NAPROXEN
     Indication: Intervertebral disc degeneration
  26. NAPROXEN [Suspect]
     Active Substance: NAPROXEN
     Indication: Neuropathy peripheral
  27. NAPROXEN [Suspect]
     Active Substance: NAPROXEN
     Indication: Hemiplegic migraine
  28. NAPROXEN [Suspect]
     Active Substance: NAPROXEN
     Indication: Endometriosis
  29. NAPROXEN [Suspect]
     Active Substance: NAPROXEN
     Indication: Arthralgia
  30. NAPROXEN [Suspect]
     Active Substance: NAPROXEN
     Indication: Spinal osteoarthritis
  31. NAPROXEN [Suspect]
     Active Substance: NAPROXEN
     Indication: Hyperparathyroidism
  32. NAPROXEN [Suspect]
     Active Substance: NAPROXEN
     Indication: Hernia
  33. NAPROXEN [Suspect]
     Active Substance: NAPROXEN
     Indication: Product used for unknown indication
  34. BUTYLSCOPOLAMINE BROMIDE [Suspect]
     Active Substance: BUTYLSCOPOLAMINE BROMIDE
     Indication: Irritable bowel syndrome
     Dosage: UNK
     Route: 065
  35. BUTYLSCOPOLAMINE BROMIDE [Suspect]
     Active Substance: BUTYLSCOPOLAMINE BROMIDE
     Indication: Product used for unknown indication
     Dosage: UNK
     Route: 065
  36. BUTYLSCOPOLAMINE BROMIDE [Suspect]
     Active Substance: BUTYLSCOPOLAMINE BROMIDE
     Dosage: UNK
     Route: 065
  37. ASPIRIN [Suspect]
     Active Substance: ASPIRIN
     Indication: Hypermobility syndrome
     Dosage: UNK
     Route: 065
  38. ASPIRIN [Suspect]
     Active Substance: ASPIRIN
     Indication: Fibromyalgia
     Dosage: UNK
     Route: 065
  39. ASPIRIN [Suspect]
     Active Substance: ASPIRIN
     Indication: Intervertebral disc degeneration
  40. ASPIRIN [Suspect]
     Active Substance: ASPIRIN
     Indication: Neuropathy peripheral
  41. ASPIRIN [Suspect]
     Active Substance: ASPIRIN
     Indication: Hemiplegic migraine
  42. ASPIRIN [Suspect]
     Active Substance: ASPIRIN
     Indication: Endometriosis
  43. ASPIRIN [Suspect]
     Active Substance: ASPIRIN
     Indication: Arthralgia
  44. ASPIRIN [Suspect]
     Active Substance: ASPIRIN
     Indication: Spinal osteoarthritis
  45. ASPIRIN [Suspect]
     Active Substance: ASPIRIN
     Indication: Hyperparathyroidism
  46. ASPIRIN [Suspect]
     Active Substance: ASPIRIN
     Indication: Hernia
  47. ASPIRIN [Suspect]
     Active Substance: ASPIRIN
     Indication: Product used for unknown indication
  48. ACETAMINOPHEN\CODEINE PHOSPHATE [Suspect]
     Active Substance: ACETAMINOPHEN\CODEINE PHOSPHATE
     Indication: Product used for unknown indication
     Dosage: UNK
     Route: 065
  49. DULOXETINE [Suspect]
     Active Substance: DULOXETINE
     Indication: Hypermobility syndrome
     Dosage: UNK
     Route: 065
  50. DULOXETINE [Suspect]
     Active Substance: DULOXETINE
     Indication: Fibromyalgia
     Dosage: UNK
     Route: 065
  51. DULOXETINE [Suspect]
     Active Substance: DULOXETINE
     Indication: Intervertebral disc degeneration
  52. DULOXETINE [Suspect]
     Active Substance: DULOXETINE
     Indication: Neuropathy peripheral
  53. DULOXETINE [Suspect]
     Active Substance: DULOXETINE
     Indication: Hemiplegic migraine
  54. DULOXETINE [Suspect]
     Active Substance: DULOXETINE
     Indication: Endometriosis
  55. DULOXETINE [Suspect]
     Active Substance: DULOXETINE
     Indication: Arthralgia
  56. DULOXETINE [Suspect]
     Active Substance: DULOXETINE
     Indication: Spinal osteoarthritis
  57. DULOXETINE [Suspect]
     Active Substance: DULOXETINE
     Indication: Hyperparathyroidism
  58. DULOXETINE [Suspect]
     Active Substance: DULOXETINE
     Indication: Hernia
  59. DULOXETINE [Suspect]
     Active Substance: DULOXETINE
     Indication: Product used for unknown indication
  60. SENNA [Suspect]
     Active Substance: SENNOSIDES
     Indication: Product used for unknown indication
     Dosage: UNK
     Route: 065
  61. SENNA [Suspect]
     Active Substance: SENNOSIDES
     Indication: Irritable bowel syndrome
     Dosage: UNK
     Route: 065
  62. COCODAMOL [Suspect]
     Active Substance: ACETAMINOPHEN\CODEINE PHOSPHATE
     Indication: Hypermobility syndrome
     Dosage: UNK
     Route: 065
  63. COCODAMOL [Suspect]
     Active Substance: ACETAMINOPHEN\CODEINE PHOSPHATE
     Indication: Fibromyalgia
     Dosage: UNK
     Route: 048
  64. COCODAMOL [Suspect]
     Active Substance: ACETAMINOPHEN\CODEINE PHOSPHATE
     Indication: Intervertebral disc degeneration
  65. COCODAMOL [Suspect]
     Active Substance: ACETAMINOPHEN\CODEINE PHOSPHATE
     Indication: Neuropathy peripheral
  66. COCODAMOL [Suspect]
     Active Substance: ACETAMINOPHEN\CODEINE PHOSPHATE
     Indication: Hemiplegic migraine
  67. COCODAMOL [Suspect]
     Active Substance: ACETAMINOPHEN\CODEINE PHOSPHATE
     Indication: Endometriosis
  68. COCODAMOL [Suspect]
     Active Substance: ACETAMINOPHEN\CODEINE PHOSPHATE
     Indication: Arthralgia
  69. COCODAMOL [Suspect]
     Active Substance: ACETAMINOPHEN\CODEINE PHOSPHATE
     Indication: Spinal osteoarthritis
  70. COCODAMOL [Suspect]
     Active Substance: ACETAMINOPHEN\CODEINE PHOSPHATE
     Indication: Hyperparathyroidism
  71. COCODAMOL [Suspect]
     Active Substance: ACETAMINOPHEN\CODEINE PHOSPHATE
     Indication: Hernia
  72. COCODAMOL [Suspect]
     Active Substance: ACETAMINOPHEN\CODEINE PHOSPHATE
     Indication: Product used for unknown indication
  73. TRAMADOL HYDROCHLORIDE [Suspect]
     Active Substance: TRAMADOL HYDROCHLORIDE
     Indication: Hypermobility syndrome
     Dosage: UNK
     Route: 065
  74. TRAMADOL HYDROCHLORIDE [Suspect]
     Active Substance: TRAMADOL HYDROCHLORIDE
     Indication: Fibromyalgia
  75. TRAMADOL HYDROCHLORIDE [Suspect]
     Active Substance: TRAMADOL HYDROCHLORIDE
     Indication: Intervertebral disc degeneration
  76. TRAMADOL HYDROCHLORIDE [Suspect]
     Active Substance: TRAMADOL HYDROCHLORIDE
     Indication: Neuropathy peripheral
  77. TRAMADOL HYDROCHLORIDE [Suspect]
     Active Substance: TRAMADOL HYDROCHLORIDE
     Indication: Hemiplegic migraine
  78. TRAMADOL HYDROCHLORIDE [Suspect]
     Active Substance: TRAMADOL HYDROCHLORIDE
     Indication: Endometriosis
  79. TRAMADOL HYDROCHLORIDE [Suspect]
     Active Substance: TRAMADOL HYDROCHLORIDE
     Indication: Arthralgia
  80. TRAMADOL HYDROCHLORIDE [Suspect]
     Active Substance: TRAMADOL HYDROCHLORIDE
     Indication: Spinal osteoarthritis
  81. TRAMADOL HYDROCHLORIDE [Suspect]
     Active Substance: TRAMADOL HYDROCHLORIDE
     Indication: Hyperparathyroidism
  82. TRAMADOL HYDROCHLORIDE [Suspect]
     Active Substance: TRAMADOL HYDROCHLORIDE
     Indication: Hernia
  83. TRAMADOL HYDROCHLORIDE [Suspect]
     Active Substance: TRAMADOL HYDROCHLORIDE
     Indication: Product used for unknown indication

REACTIONS (14)
  - Post-traumatic stress disorder [Unknown]
  - Medical induction of coma [Unknown]
  - Traumatic lung injury [Unknown]
  - Lung disorder [Unknown]
  - Asthma [Unknown]
  - Lung disorder [Unknown]
  - Pneumonia [Unknown]
  - Rash [Unknown]
  - Diarrhoea [Unknown]
  - Constipation [Unknown]
  - Irritable bowel syndrome [Unknown]
  - Irritable bowel syndrome [Unknown]
  - Diarrhoea [Unknown]
  - Condition aggravated [Unknown]
